FAERS Safety Report 9731898 (Version 2)
Quarter: 2014Q3

REPORT INFORMATION
  Report Type: Spontaneous
  Country: US (occurrence: US)
  Receive Date: 20131205
  Receipt Date: 20140725
  Transmission Date: 20150326
  Serious: Yes (Other)
  Sender: FDA-Public Use
  Company Number: US-BAYER-2013-147320

PATIENT
  Age: 34 Year
  Sex: Female

DRUGS (1)
  1. MIRENA [Suspect]
     Active Substance: LEVONORGESTREL
     Indication: CONTRACEPTION
     Dosage: 20 MCG/24HR, CONT
     Route: 015
     Dates: start: 201109

REACTIONS (4)
  - Genital haemorrhage [Recovered/Resolved]
  - Amenorrhoea [None]
  - Premenstrual syndrome [None]
  - Abdominal distension [None]

NARRATIVE: CASE EVENT DATE: 2011
